FAERS Safety Report 13404818 (Version 1)
Quarter: 2017Q2

REPORT INFORMATION
  Report Type: Spontaneous
  Country: US (occurrence: US)
  Receive Date: 20170405
  Receipt Date: 20170405
  Transmission Date: 20170830
  Serious: Yes (Other)
  Sender: FDA-Public Use
  Company Number: None

PATIENT
  Age: 50 Year
  Sex: Female
  Weight: 63 kg

DRUGS (12)
  1. FISH OIL [Concomitant]
     Active Substance: FISH OIL
  2. KIRKLAND SIGNATURE ALLER TEC ALLERGY [Concomitant]
     Active Substance: CETIRIZINE HYDROCHLORIDE
  3. VITAMIN B [Concomitant]
     Active Substance: VITAMIN B
  4. BIOTIN [Concomitant]
     Active Substance: BIOTIN
  5. AZELASTINE HCL [Suspect]
     Active Substance: AZELASTINE HYDROCHLORIDE
     Indication: EYE ALLERGY
     Dosage: ?          QUANTITY:2 DROP(S);?
     Route: 047
     Dates: start: 20170403, end: 20170404
  6. MULTI VITAMINS [Concomitant]
     Active Substance: VITAMINS
  7. VITAMIN C [Concomitant]
     Active Substance: ASCORBIC ACID
  8. RED YEAST [Concomitant]
     Active Substance: YEAST
  9. AZELASTINE HCL [Suspect]
     Active Substance: AZELASTINE HYDROCHLORIDE
     Indication: PRURITUS
     Dosage: ?          QUANTITY:2 DROP(S);?
     Route: 047
     Dates: start: 20170403, end: 20170404
  10. VITAMIN B12 [Concomitant]
     Active Substance: CYANOCOBALAMIN
  11. VITAMIN D [Concomitant]
     Active Substance: CHOLECALCIFEROL
  12. ORTHOTRICYCLINE LO [Concomitant]

REACTIONS (10)
  - Swelling face [None]
  - Eyelids pruritus [None]
  - Eyelid oedema [None]
  - Application site pain [None]
  - Ocular hyperaemia [None]
  - Blepharitis [None]
  - Erythema of eyelid [None]
  - Eye pruritus [None]
  - Eyelid irritation [None]
  - Eye irritation [None]

NARRATIVE: CASE EVENT DATE: 20170403
